FAERS Safety Report 13494700 (Version 3)
Quarter: 2017Q4

REPORT INFORMATION
  Report Type: Report from Study
  Country: US (occurrence: US)
  Receive Date: 20170428
  Receipt Date: 20171106
  Transmission Date: 20180320
  Serious: No
  Sender: FDA-Public Use
  Company Number: US-ALEXION PHARMACEUTICALS INC.-A201704213

PATIENT
  Age: 45 Year
  Sex: Male
  Weight: 106.67 kg

DRUGS (9)
  1. SOLIRIS [Suspect]
     Active Substance: ECULIZUMAB
     Dosage: 900 MG, Q2W
     Route: 042
     Dates: start: 201307
  2. FOLIC ACID. [Concomitant]
     Active Substance: FOLIC ACID
     Dosage: 1 MG, QD
     Route: 048
     Dates: start: 20170914
  3. SOLIRIS [Suspect]
     Active Substance: ECULIZUMAB
     Dosage: 900 MG, Q2W
     Route: 042
     Dates: start: 20091021
  4. SOLIRIS [Suspect]
     Active Substance: ECULIZUMAB
     Dosage: 900 MG, Q2W
     Route: 042
     Dates: start: 2012
  5. SOLIRIS [Suspect]
     Active Substance: ECULIZUMAB
     Dosage: 900 MG, Q3W
     Route: 042
     Dates: start: 2012
  6. SOLIRIS [Suspect]
     Active Substance: ECULIZUMAB
     Dosage: 900 MG, QW
     Route: 042
     Dates: start: 2012
  7. SOLIRIS [Suspect]
     Active Substance: ECULIZUMAB
     Indication: PAROXYSMAL NOCTURNAL HAEMOGLOBINURIA
     Dosage: 600 MG, UNK
     Route: 042
     Dates: start: 20090923
  8. FOLIC ACID. [Concomitant]
     Active Substance: FOLIC ACID
     Indication: PRODUCT USED FOR UNKNOWN INDICATION
     Dosage: 1 MG, QD
     Route: 048
     Dates: start: 20090225
  9. SOLIRIS [Suspect]
     Active Substance: ECULIZUMAB
     Dosage: 900 MG, Q2W
     Route: 042
     Dates: start: 201307

REACTIONS (29)
  - White blood cell count decreased [Unknown]
  - Mean cell volume increased [Unknown]
  - Platelet count decreased [Unknown]
  - Neutrophil percentage decreased [Unknown]
  - Haemolysis [Recovered/Resolved]
  - Urinary tract infection [Unknown]
  - Upper respiratory tract infection [Unknown]
  - Red blood cell count decreased [Unknown]
  - Mean cell haemoglobin increased [Unknown]
  - Red cell distribution width increased [Unknown]
  - Nasal congestion [Recovered/Resolved]
  - Haematocrit decreased [Unknown]
  - Ocular icterus [Unknown]
  - Folliculitis [Recovered/Resolved]
  - Hyperferritinaemia [Recovering/Resolving]
  - Mean cell haemoglobin concentration decreased [Unknown]
  - Cellulitis [Recovered/Resolved]
  - Blood folate decreased [Unknown]
  - Blood lactate dehydrogenase increased [Unknown]
  - Conjunctival pallor [Unknown]
  - Arthralgia [Unknown]
  - Serum ferritin increased [Recovering/Resolving]
  - Muscle spasms [Unknown]
  - Haemoglobin decreased [Unknown]
  - Anaemia [Recovering/Resolving]
  - Folate deficiency [Unknown]
  - Neutrophil count decreased [Unknown]
  - Inappropriate schedule of drug administration [Recovered/Resolved]
  - Monocyte percentage increased [Unknown]

NARRATIVE: CASE EVENT DATE: 201305
